FAERS Safety Report 6395529-3 (Version None)
Quarter: 2009Q4

REPORT INFORMATION
  Report Type: 
  Country: None (occurrence: None)
  Receive Date: 20091007
  Receipt Date: 20090729
  Transmission Date: 20100525
  Serious: Yes (Hospitalization)
  Sender: FDA-Public Use
  Company Number: ADE# 09-123

PATIENT
  Age: 46 Year
  Sex: Male
  Weight: 61.2356 kg

DRUGS (1)
  1. PHENYTOIN SODIUM [Suspect]
     Indication: CONVULSION
     Dosage: 100MG @ AM; 200MG @ BED
     Dates: end: 20090701

REACTIONS (2)
  - DRUG TOXICITY [None]
  - PRODUCT SUBSTITUTION ISSUE [None]
